FAERS Safety Report 9393047 (Version 2)
Quarter: 2013Q3

REPORT INFORMATION
  Report Type: Spontaneous
  Country: FR (occurrence: FR)
  Receive Date: 20130710
  Receipt Date: 20130916
  Transmission Date: 20140515
  Serious: Yes (Other)
  Sender: FDA-Public Use
  Company Number: FR-AMGEN-FRASP2013047819

PATIENT
  Age: 45 Year
  Sex: Female

DRUGS (3)
  1. ENBREL [Suspect]
     Indication: PRODUCT USED FOR UNKNOWN INDICATION
     Dosage: 50 MG, WEEKLY
     Route: 058
     Dates: start: 20121114, end: 201301
  2. IMETH [Concomitant]
     Dosage: 20 MG, WEEKLY
     Route: 048
     Dates: start: 201204
  3. PREVISCAN                          /00789001/ [Concomitant]
     Indication: PHLEBITIS
     Dosage: UNK
     Route: 048
     Dates: start: 201106

REACTIONS (1)
  - Thrombophlebitis [Recovered/Resolved]
